FAERS Safety Report 19867502 (Version 1)
Quarter: 2021Q3

REPORT INFORMATION
  Report Type: Spontaneous
  Country: US (occurrence: US)
  Receive Date: 20210922
  Receipt Date: 20210922
  Transmission Date: 20211014
  Serious: Yes (Other)
  Sender: FDA-Public Use
  Company Number: US-CADILA HEALTHCARE LIMITED-US-ZYDUS-069856

PATIENT

DRUGS (3)
  1. ATORVASTATIN TABLET [Suspect]
     Active Substance: ATORVASTATIN
     Dosage: 80 MILLIGRAM, QD
     Route: 048
     Dates: start: 20210812, end: 20210813
  2. ASPIRIN [ACETYLSALICYLIC ACID] [Concomitant]
     Active Substance: ASPIRIN
     Indication: CARDIAC DISORDER
     Dosage: 81 MILLIGRAM, QD
     Route: 048
  3. ATORVASTATIN TABLET [Suspect]
     Active Substance: ATORVASTATIN
     Indication: HYPERLIPIDAEMIA
     Dosage: 80 MILLIGRAM, QD
     Route: 048
     Dates: start: 20210524, end: 202107

REACTIONS (7)
  - Vomiting [Recovered/Resolved]
  - Chest pain [Recovered/Resolved]
  - Hepatic pain [Not Recovered/Not Resolved]
  - Asthenia [Not Recovered/Not Resolved]
  - Renal pain [Recovering/Resolving]
  - Arrhythmia [Recovered/Resolved]
  - Hepatic function abnormal [Unknown]

NARRATIVE: CASE EVENT DATE: 202105
